FAERS Safety Report 7192429-6 (Version None)
Quarter: 2010Q4

REPORT INFORMATION
  Report Type: 
  Country: None (occurrence: None)
  Receive Date: 20101222
  Receipt Date: 20101222
  Transmission Date: 20110411
  Serious: Yes (Other)
  Sender: FDA-Public Use
  Company Number: None

PATIENT
  Age: 52 Year
  Sex: Male
  Weight: 103.4201 kg

DRUGS (2)
  1. PRILOSEC [Suspect]
     Indication: GASTROOESOPHAGEAL REFLUX DISEASE
     Dosage: ONE TABLET DAILY PO
     Route: 048
     Dates: start: 20100101, end: 20101219
  2. ZICAM SPRAY [Suspect]
     Indication: NASOPHARYNGITIS
     Dosage: 4 SPRAYS EVERY 3 HOURS PO
     Route: 048
     Dates: start: 20101218, end: 20101220

REACTIONS (6)
  - DYSGEUSIA [None]
  - DYSPEPSIA [None]
  - GASTRIC DISORDER [None]
  - NASOPHARYNGITIS [None]
  - NONSPECIFIC REACTION [None]
  - TREATMENT NONCOMPLIANCE [None]
